FAERS Safety Report 25899650 (Version 1)
Quarter: 2025Q4

REPORT INFORMATION
  Report Type: Spontaneous
  Country: US (occurrence: US)
  Receive Date: 20251009
  Receipt Date: 20251009
  Transmission Date: 20260118
  Serious: No
  Sender: MARIUS PHARMACEUTICALS
  Company Number: US-MARIUSPHARMA-2025MAR00030

PATIENT
  Age: 64 Year
  Sex: Male
  Weight: 190 kg

DRUGS (9)
  1. KYZATREX [Suspect]
     Active Substance: TESTOSTERONE UNDECANOATE
     Indication: Blood testosterone decreased
     Dates: start: 2025
  2. Beam Minerals [Concomitant]
     Indication: Product used for unknown indication
  3. Kapex [Concomitant]
     Indication: Product used for unknown indication
  4. Masszymes [Concomitant]
     Indication: Product used for unknown indication
  5. HYDROCHLORIC ACID [Concomitant]
     Active Substance: HYDROCHLORIC ACID
     Indication: Product used for unknown indication
  6. Calcium D-glucarate [Concomitant]
     Indication: Product used for unknown indication
  7. ASTAXANTHIN [Concomitant]
     Active Substance: ASTAXANTHIN
  8. MAGNESIUM [Concomitant]
     Active Substance: MAGNESIUM
     Indication: Product used for unknown indication
  9. ZEAXANTHIN [Concomitant]
     Active Substance: ZEAXANTHIN
     Indication: Product used for unknown indication

REACTIONS (1)
  - Back pain [Recovered/Resolved]

NARRATIVE: CASE EVENT DATE: 20250101
